FAERS Safety Report 6212519-1 (Version None)
Quarter: 2009Q2

REPORT INFORMATION
  Report Type: 
  Country: None (occurrence: None)
  Receive Date: 20090603
  Receipt Date: 20090526
  Transmission Date: 20091009
  Serious: Yes (Hospitalization)
  Sender: FDA-Public Use
  Company Number: US-BIOGENIDEC-2009BI016182

PATIENT
  Age: 47 Year
  Sex: Female

DRUGS (1)
  1. AVONEX [Suspect]
     Indication: MULTIPLE SCLEROSIS
     Route: 030
     Dates: start: 20000614

REACTIONS (6)
  - BALANCE DISORDER [None]
  - CHILLS [None]
  - DEMENTIA [None]
  - DEPRESSION [None]
  - FATIGUE [None]
  - HYSTERECTOMY [None]
